FAERS Safety Report 6634007-0 (Version None)
Quarter: 2010Q1

REPORT INFORMATION
  Report Type: 
  Country: None (occurrence: None)
  Receive Date: 20100315
  Receipt Date: 20100304
  Transmission Date: 20100710
  Serious: Yes (Other)
  Sender: FDA-Public Use
  Company Number: PHHY2010BR01727

PATIENT
  Age: 78 Year
  Sex: Female
  Weight: 70 kg

DRUGS (3)
  1. DIOVAN [Suspect]
     Indication: HYPERTENSION
     Dosage: 1 TABLET (160/5/12.5 MG) IN THE MORNING
     Route: 048
     Dates: start: 20091001
  2. CITALOPRAM HYDROBROMIDE [Concomitant]
     Indication: SLEEP DISORDER
     Dosage: 1 TABLET (20 MG) IN THE MORNING
     Dates: start: 20091001
  3. CLONAZEPAM [Concomitant]
     Indication: SLEEP DISORDER
     Dosage: 1 TABLET (25 MG) AT NIGHT
     Dates: start: 20091001

REACTIONS (1)
  - HALLUCINATION [None]
